FAERS Safety Report 16840956 (Version 2)
Quarter: 2020Q1

REPORT INFORMATION
  Report Type: Spontaneous
  Country: US (occurrence: US)
  Receive Date: 20190923
  Receipt Date: 20200114
  Transmission Date: 20200409
  Serious: No
  Sender: FDA-Public Use
  Company Number: US-JNJFOC-20190925963

PATIENT
  Sex: Male
  Weight: 88.53 kg

DRUGS (4)
  1. ACETAZOLAMIDE. [Concomitant]
     Active Substance: ACETAZOLAMIDE
     Indication: MENIERE^S DISEASE
     Route: 048
  2. TREMFYA [Suspect]
     Active Substance: GUSELKUMAB
     Route: 042
  3. MECLIZINE [Concomitant]
     Active Substance: MECLIZINE HYDROCHLORIDE
     Indication: MENIERE^S DISEASE
     Route: 048
  4. TREMFYA [Suspect]
     Active Substance: GUSELKUMAB
     Indication: PSORIASIS
     Route: 058
     Dates: start: 2017

REACTIONS (2)
  - Incorrect route of product administration [Unknown]
  - Off label use [Unknown]
